FAERS Safety Report 16114521 (Version 1)
Quarter: 2019Q1

REPORT INFORMATION
  Report Type: Spontaneous
  Country: FR (occurrence: FR)
  Receive Date: 20190325
  Receipt Date: 20190325
  Transmission Date: 20190418
  Serious: Yes (Life-Threatening)
  Sender: FDA-Public Use
  Company Number: FR-NOVOPROD-652650

PATIENT
  Age: 73 Year
  Sex: Male
  Weight: 90 kg

DRUGS (21)
  1. LEVEMIR [Suspect]
     Active Substance: INSULIN DETEMIR
     Indication: TYPE 2 DIABETES MELLITUS
     Dosage: 20 IU, QD
     Route: 058
     Dates: end: 20190216
  2. CALCIPARINE [Suspect]
     Active Substance: HEPARIN CALCIUM
     Indication: ATRIAL FIBRILLATION
     Dosage: 1.2 ML, QD
     Route: 058
     Dates: start: 20190103, end: 20190224
  3. INVANZ [Suspect]
     Active Substance: ERTAPENEM SODIUM
     Indication: PROSTATITIS
     Dosage: 1 G, QD
     Route: 042
     Dates: start: 20190209, end: 20190215
  4. NEFOPAM MYLAN [Suspect]
     Active Substance: NEFOPAM
     Indication: PAIN
     Dosage: 3 DF, QD
     Route: 048
     Dates: start: 20190214, end: 20190215
  5. LEVOTHYROX [Concomitant]
     Active Substance: LEVOTHYROXINE
     Indication: PRODUCT USED FOR UNKNOWN INDICATION
     Dosage: UNK
     Route: 065
  6. TIAPRIDAL [Suspect]
     Active Substance: TIAPRIDE HYDROCHLORIDE
     Indication: AGGRESSION
     Dosage: 10 DROP QD
     Route: 048
     Dates: start: 20190108, end: 20190215
  7. CALCIDOSE                          /07357001/ [Suspect]
     Active Substance: CALCIUM CARBONATE
     Indication: HYPOCALCAEMIA
     Dosage: 1 DF, QD
     Route: 048
     Dates: start: 20190211, end: 20190214
  8. GALVUS [Suspect]
     Active Substance: VILDAGLIPTIN
     Indication: TYPE 2 DIABETES MELLITUS
     Dosage: 1 DF, QD
     Route: 048
     Dates: end: 20190215
  9. KARDEGIC [Concomitant]
     Active Substance: ASPIRIN DL-LYSINE
     Indication: PRODUCT USED FOR UNKNOWN INDICATION
     Dosage: UNK
     Route: 065
  10. FUROSEMIDE ARROW [Suspect]
     Active Substance: FUROSEMIDE
     Indication: HYPERTENSION
     Dosage: 2 DF, QD
     Route: 048
     Dates: start: 201810, end: 20190215
  11. DIFFU K [Suspect]
     Active Substance: POTASSIUM CHLORIDE
     Indication: HYPOKALAEMIA
     Dosage: 4 DF, QD
     Route: 048
     Dates: start: 20190103, end: 20190215
  12. AMLODIPINE [Suspect]
     Active Substance: AMLODIPINE BESYLATE
     Indication: HYPERTENSION
     Dosage: 1 DF, QD
     Route: 058
     Dates: end: 20190215
  13. PREGABALINE ARROW [Suspect]
     Active Substance: PREGABALIN
     Indication: NEURALGIA
     Dosage: 1 DF, QD
     Route: 042
     Dates: start: 2017, end: 20190215
  14. MOVICOL [Suspect]
     Active Substance: POLYETHYLENE GLYCOL 3350\POTASSIUM CHLORIDE\SODIUM BICARBONATE\SODIUM CHLORIDE
     Indication: CONSTIPATION
     Dosage: 1 DF, QD
     Route: 048
     Dates: start: 20190214, end: 20190214
  15. DAPTOMYCINE [Suspect]
     Active Substance: DAPTOMYCIN
     Indication: STAPHYLOCOCCAL INFECTION
     Dosage: 600 MG, QD
     Route: 042
     Dates: start: 20190212, end: 20190220
  16. DOLIPRANE [Suspect]
     Active Substance: ACETAMINOPHEN
     Indication: PAIN
     Dosage: 2 TO 8 CAPSULE DAILY
     Route: 048
     Dates: start: 20190210, end: 20190214
  17. BISOCE [Suspect]
     Active Substance: BISOPROLOL
     Indication: HYPERTENSION
     Dosage: 1 DF, QD
     Route: 048
     Dates: end: 20190215
  18. PANTOPRAZOLE MYLAN [Suspect]
     Active Substance: PANTOPRAZOLE SODIUM
     Indication: ARTHRITIS
     Dosage: 1 DF, QD
     Route: 048
     Dates: end: 20190216
  19. TAMSULOSINE                        /01280301/ [Suspect]
     Active Substance: TAMSULOSIN
     Indication: URINARY RETENTION
     Dosage: 1 DF, QD
     Route: 048
     Dates: start: 20190213, end: 20190214
  20. ACIDE FOLIQUE ARROW [Suspect]
     Active Substance: FOLIC ACID
     Indication: IRON DEFICIENCY ANAEMIA
     Dosage: 2 DF, QD
     Route: 048
     Dates: start: 20190213, end: 20190215
  21. NORMACOL                           /00086101/ [Suspect]
     Active Substance: SULFAMETHOXAZOLE\TRIMETHOPRIM
     Indication: CONSTIPATION
     Dosage: 1 DF, QD
     Route: 054
     Dates: start: 20190214, end: 20190214

REACTIONS (3)
  - Generalised tonic-clonic seizure [Recovered/Resolved]
  - Coma [Recovered/Resolved]
  - Encephalopathy [Recovered/Resolved]

NARRATIVE: CASE EVENT DATE: 20190215
